FAERS Safety Report 4661981-4 (Version None)
Quarter: 2005Q2

REPORT INFORMATION
  Report Type: 
  Country: None (occurrence: None)
  Receive Date: 20050512
  Receipt Date: 20050512
  Transmission Date: 20051028
  Serious: Yes (Hospitalization)
  Sender: FDA-Public Use
  Company Number: None

PATIENT
  Age: 18 Year
  Sex: Female
  Weight: 46.4 kg

DRUGS (9)
  1. TOBI [Suspect]
     Indication: CYSTIC FIBROSIS
     Dosage: 300 MG BID BY AEROSOL
     Route: 055
     Dates: start: 20050418
  2. TOBI [Suspect]
     Indication: LUNG INFECTION PSEUDOMONAL
     Dosage: 300 MG BID BY AEROSOL
     Route: 055
     Dates: start: 20050418
  3. PULMOZYME [Concomitant]
  4. ALBUTEROL [Concomitant]
  5. PANCREACARB [Concomitant]
  6. RANITIDINE [Concomitant]
  7. ADEK VITAMINS [Concomitant]
  8. REGLAN [Concomitant]
  9. AZITHROMYCIN [Concomitant]

REACTIONS (2)
  - CONDITION AGGRAVATED [None]
  - HAEMOPTYSIS [None]
